FAERS Safety Report 9441557 (Version 5)
Quarter: 2014Q3

REPORT INFORMATION
  Report Type: Report from Study
  Country: BR (occurrence: BR)
  Receive Date: 20130805
  Receipt Date: 20140811
  Transmission Date: 20150326
  Serious: Yes (Hospitalization, Disabling)
  Sender: FDA-Public Use
  Company Number: BR-ROCHE-1254707

PATIENT
  Age: 73 Year
  Sex: Female
  Weight: 62.5 kg

DRUGS (12)
  1. PREDNISONE. [Concomitant]
     Active Substance: PREDNISONE
     Route: 065
     Dates: start: 20130814, end: 20130820
  2. TOCILIZUMAB [Suspect]
     Active Substance: TOCILIZUMAB
     Route: 050
     Dates: start: 20130917
  3. TOCILIZUMAB [Suspect]
     Active Substance: TOCILIZUMAB
     Dosage: LAST DOSE PRIOR TO SAE (LUNG CAPACITY DECREASED) ON15/OCT/2013
     Route: 050
  4. SIMVASTATIN. [Concomitant]
     Active Substance: SIMVASTATIN
     Route: 065
     Dates: start: 201009
  5. PREDNISONE. [Concomitant]
     Active Substance: PREDNISONE
     Route: 065
     Dates: start: 20130725, end: 20130729
  6. PREDNISONE. [Concomitant]
     Active Substance: PREDNISONE
     Route: 065
     Dates: start: 20130828
  7. PREDNISONE. [Concomitant]
     Active Substance: PREDNISONE
     Route: 048
     Dates: start: 20130625, end: 20130702
  8. PREDNISONE. [Concomitant]
     Active Substance: PREDNISONE
     Route: 065
     Dates: start: 20130730, end: 20130806
  9. PREDNISONE. [Concomitant]
     Active Substance: PREDNISONE
     Route: 065
     Dates: start: 20130807, end: 20130813
  10. TOCILIZUMAB [Suspect]
     Active Substance: TOCILIZUMAB
     Indication: RHEUMATOID ARTHRITIS
     Dosage: DOSAGE FORM: 200MG/10ML, DATE OF LAST DOSE PRIOR TO SAE: 28/MAY/2013, .
     Route: 050
     Dates: start: 20130402, end: 20130625
  11. PREDNISONE. [Concomitant]
     Active Substance: PREDNISONE
     Indication: LUNG DISORDER
     Route: 065
     Dates: start: 20130723, end: 20130724
  12. PREDNISONE. [Concomitant]
     Active Substance: PREDNISONE
     Route: 065
     Dates: start: 20130821, end: 20130827

REACTIONS (2)
  - Lung disorder [Recovered/Resolved with Sequelae]
  - Total lung capacity decreased [Not Recovered/Not Resolved]

NARRATIVE: CASE EVENT DATE: 20130716
